FAERS Safety Report 8915251 (Version 1)
Quarter: 2012Q4

REPORT INFORMATION
  Report Type: 
  Country: US (occurrence: US)
  Receive Date: 20121119
  Receipt Date: 20121119
  Transmission Date: 20130627
  Serious: Yes (Other)
  Sender: FDA-Public Use
  Company Number: US-PFIZER INC-2012288319

PATIENT
  Sex: Male

DRUGS (4)
  1. ADVIL PM [Suspect]
     Indication: ARTHRITIS
     Dosage: 200\25 mg, as needed
     Route: 048
     Dates: start: 20111130, end: 20121114
  2. ADVIL PM [Suspect]
     Indication: SLEEP DISORDER
  3. LISINOPRIL [Concomitant]
     Indication: BLOOD PRESSURE HIGH
     Dosage: 10 mg, UNK
  4. AMLODIPINE [Concomitant]
     Indication: BLOOD PRESSURE HIGH
     Dosage: 5 mg, UNK

REACTIONS (2)
  - Drug dependence [Unknown]
  - Blood pressure increased [Unknown]
